FAERS Safety Report 5088373-0 (Version None)
Quarter: 2006Q3

REPORT INFORMATION
  Report Type: 
  Country: None (occurrence: None)
  Receive Date: 20060821
  Receipt Date: 20060807
  Transmission Date: 20061208
  Serious: Yes (Hospitalization)
  Sender: FDA-Public Use
  Company Number: 2006BI011136

PATIENT
  Age: 55 Year
  Sex: Female
  Weight: 90.2658 kg

DRUGS (2)
  1. AVONEX [Suspect]
     Indication: MULTIPLE SCLEROSIS
     Dosage: 30 UG;QW;IM
     Route: 030
     Dates: start: 20010101, end: 20030801
  2. AVONEX [Suspect]
     Indication: MULTIPLE SCLEROSIS
     Dosage: 30 UG;QW;IM
     Route: 030
     Dates: start: 20030801

REACTIONS (5)
  - CHILLS [None]
  - MOUTH HAEMORRHAGE [None]
  - MULTIPLE SCLEROSIS RELAPSE [None]
  - THROMBOSIS [None]
  - WEIGHT INCREASED [None]
